FAERS Safety Report 19600454 (Version 1)
Quarter: 2021Q3

REPORT INFORMATION
  Report Type: Spontaneous
  Country: US (occurrence: US)
  Receive Date: 20210722
  Receipt Date: 20210722
  Transmission Date: 20211014
  Serious: Yes (Other)
  Sender: FDA-Public Use
  Company Number: US-UCBSA-2021033557

PATIENT
  Age: 32 Year
  Sex: Female

DRUGS (1)
  1. CIMZIA [Suspect]
     Active Substance: CERTOLIZUMAB PEGOL
     Indication: PRODUCT USED FOR UNKNOWN INDICATION
     Dosage: 400 MILLIGRAM, EV 2 WEEKS(QOW)
     Route: 058
     Dates: start: 202106, end: 202107

REACTIONS (5)
  - Muscle contractions involuntary [Unknown]
  - Tremor [Unknown]
  - Ocular hyperaemia [Unknown]
  - Chills [Unknown]
  - Injection site rash [Unknown]

NARRATIVE: CASE EVENT DATE: 20210712
